FAERS Safety Report 6369288-4 (Version None)
Quarter: 2009Q3

REPORT INFORMATION
  Report Type: 
  Country: None (occurrence: None)
  Receive Date: 20090922
  Receipt Date: 20090914
  Transmission Date: 20100115
  Serious: Yes (Hospitalization)
  Sender: FDA-Public Use
  Company Number: TR-AMGEN-UK364997

PATIENT
  Age: 53 Year
  Sex: Female

DRUGS (7)
  1. NEUPOGEN [Suspect]
     Indication: AGRANULOCYTOSIS
     Route: 058
  2. IMIPENEM [Concomitant]
     Route: 042
  3. VANCOMYCIN [Concomitant]
     Route: 042
  4. AMIKACIN [Concomitant]
     Route: 042
  5. METRONIDAZOLE [Concomitant]
     Route: 042
  6. AMPHOTERICIN B [Concomitant]
     Route: 065
  7. PROPYL-THIOURACIL [Concomitant]
     Route: 065

REACTIONS (1)
  - DRUG INEFFECTIVE [None]
